FAERS Safety Report 19806800 (Version 11)
Quarter: 2022Q4

REPORT INFORMATION
  Report Type: Spontaneous
  Country: CA (occurrence: CA)
  Receive Date: 20210909
  Receipt Date: 20221223
  Transmission Date: 20230113
  Serious: Yes (Other)
  Sender: FDA-Public Use
  Company Number: CA-CELLTRION INC.-2021CA012305

PATIENT

DRUGS (32)
  1. INFLECTRA [Suspect]
     Active Substance: INFLIXIMAB-DYYB
     Indication: Colitis ulcerative
     Dosage: 400 MG, AT 0,2,6 WEEKS THEN EVERY 8 WEEKS
     Route: 042
     Dates: start: 20210826, end: 20211007
  2. INFLECTRA [Suspect]
     Active Substance: INFLIXIMAB-DYYB
     Dosage: 400 MG, AT 0,2,6 WEEKS THEN EVERY 8 WEEKS
     Route: 042
     Dates: start: 20211007
  3. INFLECTRA [Suspect]
     Active Substance: INFLIXIMAB-DYYB
     Dosage: 400 MG,EVERY 6 WEEKS
     Route: 042
     Dates: start: 20211118, end: 20211230
  4. INFLECTRA [Suspect]
     Active Substance: INFLIXIMAB-DYYB
     Dosage: 400 MG,EVERY 6 WEEKS
     Route: 042
     Dates: start: 20211230
  5. INFLECTRA [Suspect]
     Active Substance: INFLIXIMAB-DYYB
     Dosage: 500 MG,EVERY 6 WEEKS
     Route: 042
     Dates: start: 20220210, end: 20220324
  6. INFLECTRA [Suspect]
     Active Substance: INFLIXIMAB-DYYB
     Dosage: 500 MG,EVERY 6 WEEKS
     Route: 042
     Dates: start: 20220324
  7. INFLECTRA [Suspect]
     Active Substance: INFLIXIMAB-DYYB
     Dosage: 500 MG,EVERY 4 WEEKS
     Route: 042
     Dates: start: 20220421
  8. INFLECTRA [Suspect]
     Active Substance: INFLIXIMAB-DYYB
     Dosage: 500 MG,EVERY 4 WEEKS
     Route: 042
     Dates: start: 20220616
  9. INFLECTRA [Suspect]
     Active Substance: INFLIXIMAB-DYYB
     Dosage: 500 MG,EVERY 4 WEEKS
     Route: 042
     Dates: start: 20220811
  10. INFLECTRA [Suspect]
     Active Substance: INFLIXIMAB-DYYB
     Dosage: 500 MG,EVERY 4 WEEKS
     Route: 042
     Dates: start: 20220920
  11. INFLECTRA [Suspect]
     Active Substance: INFLIXIMAB-DYYB
     Dosage: 500 MG,EVERY 4 WEEKS
     Route: 042
     Dates: start: 20221115
  12. INFLECTRA [Suspect]
     Active Substance: INFLIXIMAB-DYYB
     Dosage: 500 MG,EVERY 4 WEEKS
     Route: 042
     Dates: start: 20221213
  13. ACETAMINOPHEN [Concomitant]
     Active Substance: ACETAMINOPHEN
     Indication: Premedication
     Dosage: 650 MG
     Dates: start: 20210826
  14. ACETAMINOPHEN [Concomitant]
     Active Substance: ACETAMINOPHEN
     Dosage: 650 MG
     Dates: start: 20211118, end: 20211118
  15. ACETAMINOPHEN [Concomitant]
     Active Substance: ACETAMINOPHEN
     Dosage: 500 MG
     Dates: start: 20220324, end: 20220324
  16. ACETAMINOPHEN [Concomitant]
     Active Substance: ACETAMINOPHEN
     Dosage: UNK  (AT HOME)
     Dates: start: 20220616, end: 20220616
  17. ACETAMINOPHEN [Concomitant]
     Active Substance: ACETAMINOPHEN
     Dosage: 650 MG
     Route: 048
     Dates: start: 20221115, end: 20221115
  18. ACETAMINOPHEN [Concomitant]
     Active Substance: ACETAMINOPHEN
     Dosage: 650 MG
     Route: 048
     Dates: start: 20221213, end: 20221213
  19. ATORVASTATIN [Concomitant]
     Active Substance: ATORVASTATIN
     Dosage: UNK
  20. HYDROCORTISONE [Concomitant]
     Active Substance: HYDROCORTISONE
     Indication: Premedication
     Dosage: 100 MG
     Dates: start: 20210826
  21. HYDROCORTISONE [Concomitant]
     Active Substance: HYDROCORTISONE
     Dosage: 100 MG
     Route: 042
     Dates: start: 20211230, end: 20211230
  22. HYDROCORTISONE [Concomitant]
     Active Substance: HYDROCORTISONE
     Dosage: 100 MG
     Route: 042
     Dates: start: 20220324, end: 20220324
  23. HYDROCORTISONE [Concomitant]
     Active Substance: HYDROCORTISONE
     Dosage: 100 MG
     Route: 042
     Dates: start: 20220616, end: 20220616
  24. HYDROCORTISONE [Concomitant]
     Active Substance: HYDROCORTISONE
     Dosage: 100 MG
     Route: 042
     Dates: start: 20221115, end: 20221115
  25. HYDROCORTISONE [Concomitant]
     Active Substance: HYDROCORTISONE
     Dosage: 100 MG
     Route: 042
     Dates: start: 20221213, end: 20221213
  26. IMURAN [Concomitant]
     Active Substance: AZATHIOPRINE
     Dosage: UNK
  27. METHYLPREDNISOLONE [Concomitant]
     Active Substance: METHYLPREDNISOLONE
     Indication: Premedication
     Dosage: 100 MG
     Dates: start: 20211118, end: 20211118
  28. MESALAMINE [Concomitant]
     Active Substance: MESALAMINE
     Dosage: UNK
  29. PREDNISONE [Concomitant]
     Active Substance: PREDNISONE
     Dosage: UNK
  30. MESALAMINE [Concomitant]
     Active Substance: MESALAMINE
     Dosage: UNK
  31. SERTRALINE [Concomitant]
     Active Substance: SERTRALINE HYDROCHLORIDE
     Dosage: UNK
  32. TYLENOL [Concomitant]
     Active Substance: ACETAMINOPHEN
     Indication: Premedication
     Dosage: 1 DF
     Route: 048
     Dates: start: 20211230, end: 20211230

REACTIONS (21)
  - Nephrolithiasis [Recovering/Resolving]
  - Blood pressure increased [Not Recovered/Not Resolved]
  - Therapeutic response shortened [Unknown]
  - Therapeutic product effect incomplete [Unknown]
  - Weight increased [Unknown]
  - Off label use [Unknown]
  - Intentional product use issue [Unknown]
  - Off label use [Unknown]
  - Product use issue [Unknown]
  - Condition aggravated [Unknown]
  - Inappropriate schedule of product administration [Unknown]
  - Infusion related reaction [Unknown]
  - Heart rate increased [Not Recovered/Not Resolved]
  - Arthralgia [Unknown]
  - Back pain [Unknown]
  - Headache [Not Recovered/Not Resolved]
  - Blood pressure fluctuation [Unknown]
  - Abdominal discomfort [Not Recovered/Not Resolved]
  - Diarrhoea [Not Recovered/Not Resolved]
  - Abdominal pain [Not Recovered/Not Resolved]
  - Anal incontinence [Unknown]

NARRATIVE: CASE EVENT DATE: 20210101
